FAERS Safety Report 15927206 (Version 1)
Quarter: 2019Q1

REPORT INFORMATION
  Report Type: Spontaneous
  Country: US (occurrence: US)
  Receive Date: 20190206
  Receipt Date: 20190206
  Transmission Date: 20190417
  Serious: Yes (Hospitalization, Other)
  Sender: FDA-Public Use
  Company Number: US-TEVA-2019-US-1007729

PATIENT
  Age: 59 Year
  Sex: Female
  Weight: 70 kg

DRUGS (7)
  1. PLAVIX [Concomitant]
     Active Substance: CLOPIDOGREL BISULFATE
  2. PROTONIX [Concomitant]
     Active Substance: PANTOPRAZOLE SODIUM
  3. ASPIRIN. [Concomitant]
     Active Substance: ASPIRIN
  4. PROZAC [Concomitant]
     Active Substance: FLUOXETINE HYDROCHLORIDE
  5. AJOVY [Suspect]
     Active Substance: FREMANEZUMAB-VFRM
     Indication: HEADACHE
     Dates: start: 20181217
  6. LOSARTAN. [Concomitant]
     Active Substance: LOSARTAN
  7. GABAPENTIN. [Concomitant]
     Active Substance: GABAPENTIN

REACTIONS (3)
  - Chronic obstructive pulmonary disease [Recovered/Resolved]
  - Pneumonia [Recovered/Resolved]
  - Inability to afford medication [Unknown]

NARRATIVE: CASE EVENT DATE: 201901
